FAERS Safety Report 12189115 (Version 1)
Quarter: 2016Q1

REPORT INFORMATION
  Report Type: Spontaneous
  Country: GB (occurrence: GB)
  Receive Date: 20160317
  Receipt Date: 20160317
  Transmission Date: 20160526
  Serious: Yes (Other)
  Sender: FDA-Public Use
  Company Number: GB-TEVA-643510ACC

PATIENT
  Age: 6 Year
  Sex: Male
  Weight: 24 kg

DRUGS (8)
  1. AMOXICILLIN. [Suspect]
     Active Substance: AMOXICILLIN
     Route: 048
     Dates: start: 20160217, end: 20160220
  2. CLENIL MODULITE [Concomitant]
     Active Substance: BECLOMETHASONE DIPROPIONATE
     Dosage: 4 DOSAGE FORMS DAILY;
     Route: 055
     Dates: start: 20150605
  3. LOCOID [Concomitant]
     Active Substance: HYDROCORTISONE BUTYRATE
     Dosage: 2 DOSAGE FORMS DAILY;
     Dates: start: 20151203, end: 20151231
  4. MONTELUKAST [Concomitant]
     Active Substance: MONTELUKAST SODIUM
     Dosage: 1 DOSAGE FORMS DAILY; AT NIGHT; DAILY DOSE: 1 DOSAGE FORMS
     Dates: start: 20150605
  5. CHLORAMPHENICOL [Concomitant]
     Active Substance: CHLORAMPHENICOL
     Dosage: 4 GTT DAILY;
     Dates: start: 20160220, end: 20160221
  6. OILATUM [Concomitant]
     Dosage: USE AS DIRECTED
     Dates: start: 20150122
  7. CETRABEN EMOLLIENT BATH ADDITIVE [Concomitant]
     Dosage: USE AS MUCH AS POSSIBLE AND AS SOAP SUBSTITUTE
     Dates: start: 20150122
  8. LIGHT LIQUID PARAFFIN [Concomitant]
     Dosage: USE AS DIRECTED
     Dates: start: 20150122

REACTIONS (1)
  - Eye swelling [Recovered/Resolved]

NARRATIVE: CASE EVENT DATE: 20160219
